FAERS Safety Report 14536414 (Version 1)
Quarter: 2018Q1

REPORT INFORMATION
  Report Type: Spontaneous
  Country: US (occurrence: US)
  Receive Date: 20180215
  Receipt Date: 20180215
  Transmission Date: 20180509
  Serious: Yes (Hospitalization)
  Sender: FDA-Public Use
  Company Number: None

PATIENT
  Age: 68 Year
  Sex: Female
  Weight: 80.3 kg

DRUGS (12)
  1. MVI [Concomitant]
     Active Substance: VITAMINS
  2. DIAZEPAM. [Suspect]
     Active Substance: DIAZEPAM
     Indication: ANXIETY
     Dosage: DATES OF USE - RECENT?FREQUENCY - Q6HR PRN?
     Route: 048
  3. NS [Concomitant]
     Active Substance: SODIUM CHLORIDE
  4. NTG [Concomitant]
     Active Substance: NITROGLYCERIN
  5. LOPRESSOR [Concomitant]
     Active Substance: METOPROLOL TARTRATE
  6. HYDROMORPHONE [Suspect]
     Active Substance: HYDROMORPHONE
     Indication: BACK PAIN
     Dosage: DATES OF USE - RECENT?FREQUENCY - Q3HRS PRN
     Route: 042
  7. NYSTATIN. [Concomitant]
     Active Substance: NYSTATIN
  8. HUMALOG [Concomitant]
     Active Substance: INSULIN LISPRO
  9. LOVENOX [Concomitant]
     Active Substance: ENOXAPARIN SODIUM
  10. ANCEF [Concomitant]
     Active Substance: CEFAZOLIN SODIUM
  11. MAG SULFATE [Concomitant]
  12. PROTONIX [Concomitant]
     Active Substance: PANTOPRAZOLE SODIUM

REACTIONS (2)
  - Therapy cessation [None]
  - Mental status changes [None]

NARRATIVE: CASE EVENT DATE: 20170528
